FAERS Safety Report 5511067-1 (Version None)
Quarter: 2007Q4

REPORT INFORMATION
  Report Type: 
  Country: None (occurrence: None)
  Receive Date: 20071107
  Receipt Date: 20071024
  Transmission Date: 20080405
  Serious: Yes (Disabling, Other)
  Sender: FDA-Public Use
  Company Number: 100#03#2007-04317

PATIENT
  Age: 58 Year
  Sex: Male

DRUGS (9)
  1. CITALOPRAM HYDROBROMIDE [Suspect]
     Indication: DRUG USE FOR UNKNOWN INDICATION
     Dosage: 20MG, ONCE DAILY
     Route: 048
     Dates: start: 20070927, end: 20071011
  2. AMITRIPTLINE HCL [Concomitant]
  3. ATORVASTATIN (ATORVASTATIN) (ATORVASTATIN) [Concomitant]
  4. CODEINE (CODEINE) (CODEINE) [Concomitant]
  5. CO-DYDRAMOL (PARAMOL-118) (DIHYDROCODEINE, PARACETAMOL) [Concomitant]
  6. DICLOFENAC (DICLOFENAC) (DICLOFENAC) [Concomitant]
  7. FYBOGEL (PLANTAGO OVATA) (ISPAGHULA HUSK) [Concomitant]
  8. SENNA (SENNA ALENXANDRINA) (SENNA) [Concomitant]
  9. SILDENAFIL (SILDENAFIL) (SILDENAFIL) [Concomitant]

REACTIONS (2)
  - DEPRESSED LEVEL OF CONSCIOUSNESS [None]
  - DEPRESSION [None]
